FAERS Safety Report 6857704-0 (Version None)
Quarter: 2010Q3

REPORT INFORMATION
  Report Type: 
  Country: None (occurrence: None)
  Receive Date: 20100719
  Receipt Date: 20080121
  Transmission Date: 20110219
  Serious: No
  Sender: FDA-Public Use
  Company Number: US-PFIZER INC-2008009555

PATIENT
  Sex: Male
  Weight: 88.5 kg

DRUGS (1)
  1. CHANTIX [Suspect]
     Dates: start: 20080101

REACTIONS (8)
  - ABNORMAL DREAMS [None]
  - AGITATION [None]
  - ANXIETY [None]
  - FEELING ABNORMAL [None]
  - HEADACHE [None]
  - MALAISE [None]
  - NAUSEA [None]
  - UNEVALUABLE EVENT [None]
